FAERS Safety Report 4592760-4 (Version None)
Quarter: 2005Q1

REPORT INFORMATION
  Report Type: 
  Country: None (occurrence: None)
  Receive Date: 20050222
  Receipt Date: 20050202
  Transmission Date: 20050727
  Serious: Yes (Hospitalization)
  Sender: FDA-Public Use
  Company Number: WAES 0502GBR00025

PATIENT
  Age: 73 Year
  Sex: Male

DRUGS (1)
  1. VIOXX [Suspect]
     Indication: NEOPLASM PROPHYLAXIS
     Dosage: 25 MG/DAILY
     Route: 048
     Dates: start: 20020718, end: 20030129

REACTIONS (1)
  - CEREBROVASCULAR ACCIDENT [None]
